FAERS Safety Report 12977676 (Version 1)
Quarter: 2016Q4

REPORT INFORMATION
  Report Type: Spontaneous
  Country: US (occurrence: US)
  Receive Date: 20161128
  Receipt Date: 20161128
  Transmission Date: 20170207
  Serious: No
  Sender: FDA-Public Use
  Company Number: US-BAYER-2016-223440

PATIENT
  Sex: Male
  Weight: 92.51 kg

DRUGS (4)
  1. VITAMIN C [Concomitant]
     Active Substance: ASCORBIC ACID
     Indication: NASOPHARYNGITIS
     Dosage: 2 DF, QD
     Dates: start: 1979
  2. ADVIL [Concomitant]
     Active Substance: IBUPROFEN
     Indication: SINUS DISORDER
     Dosage: 2 DF, QD
     Route: 048
  3. BENADRYL [Concomitant]
     Active Substance: DIPHENHYDRAMINE HYDROCHLORIDE
     Indication: SINUSITIS NONINFECTIVE
     Dosage: 2 DF, PRN
     Route: 048
  4. CLARITIN [Suspect]
     Active Substance: LORATADINE
     Dosage: UNK

REACTIONS (2)
  - Foreign body [None]
  - Drug ineffective [Unknown]
